FAERS Safety Report 21188787 (Version 2)
Quarter: 2022Q3

REPORT INFORMATION
  Report Type: Report from Study
  Country: RU (occurrence: RU)
  Receive Date: 20220809
  Receipt Date: 20220822
  Transmission Date: 20221026
  Serious: Yes (Other)
  Sender: FDA-Public Use
  Company Number: RU-NOVARTISPH-NVSC2022RU176039

PATIENT
  Age: 1 Year
  Sex: Male

DRUGS (2)
  1. ZOLGENSMA [Suspect]
     Active Substance: ONASEMNOGENE ABEPARVOVEC-XIOI
     Indication: Spinal muscular atrophy
     Dosage: 55 ML, ONCE/SINGLE
     Route: 041
     Dates: start: 20220713
  2. PREDNISOLONE [Concomitant]
     Active Substance: PREDNISOLONE
     Indication: Product used for unknown indication
     Dosage: 1 MG/KG, QD
     Route: 065

REACTIONS (15)
  - Blood potassium decreased [Unknown]
  - Nausea [Unknown]
  - Neutrophil count increased [Unknown]
  - Regurgitation [Unknown]
  - Retching [Unknown]
  - International normalised ratio decreased [Recovering/Resolving]
  - Thrombin time shortened [Recovered/Resolved]
  - Activated partial thromboplastin time shortened [Recovered/Resolved]
  - Blood lactate dehydrogenase increased [Unknown]
  - Acid base balance [Recovered/Resolved]
  - Monocytosis [Unknown]
  - Aspartate aminotransferase increased [Unknown]
  - Platelet count decreased [Recovering/Resolving]
  - Vomiting [Recovered/Resolved]
  - Body temperature increased [Recovered/Resolved]

NARRATIVE: CASE EVENT DATE: 20220714
